FAERS Safety Report 5697465-4 (Version None)
Quarter: 2008Q2

REPORT INFORMATION
  Report Type: 
  Country: None (occurrence: None)
  Receive Date: 20080407
  Receipt Date: 20080331
  Transmission Date: 20081010
  Serious: Yes (Hospitalization, Other)
  Sender: FDA-Public Use
  Company Number: PHBS2008BR02675

PATIENT
  Age: 90 Year
  Sex: Female
  Weight: 52 kg

DRUGS (13)
  1. GENTEAL (NVO) [Suspect]
     Dosage: 6 DRP/DAY
  2. PURAN T4 [Concomitant]
     Indication: THYROID DISORDER
     Dosage: 1 TABLET DAILY
  3. DIAMICRON [Concomitant]
     Dosage: 1 TABLET DAILY ON FASTING
     Route: 048
  4. DIATRALINA [Concomitant]
  5. INDAPAMIDE [Concomitant]
  6. CLORIDRATO DE SERTRALINA [Concomitant]
  7. DICOPE [Concomitant]
     Dosage: 1 DF, BID
  8. EMAMA [Concomitant]
     Dosage: 1 TAB/DAY
  9. CALTRATE [Concomitant]
     Dosage: 1 TAB/DAY
  10. OCUVITE [Concomitant]
     Dosage: 1 TAB/DAY
  11. LABEXIMOL VITAMIN [Concomitant]
     Dosage: 1 TAB/DAY
  12. RIVOTRIL [Concomitant]
     Dosage: 1 TAB/DAY
  13. OSTEOPORNE [Concomitant]

REACTIONS (8)
  - ANOREXIA [None]
  - CATARACT OPERATION [None]
  - CATARACT OPERATION COMPLICATION [None]
  - DEPRESSION [None]
  - DIPLOPIA [None]
  - MEMORY IMPAIRMENT [None]
  - VISION BLURRED [None]
  - WEIGHT DECREASED [None]
